FAERS Safety Report 7028310-2 (Version None)
Quarter: 2010Q4

REPORT INFORMATION
  Report Type: 
  Country: None (occurrence: None)
  Receive Date: 20101005
  Receipt Date: 20100927
  Transmission Date: 20110411
  Serious: Yes (Death)
  Sender: FDA-Public Use
  Company Number: US-ROCHE-717683

PATIENT
  Sex: Female
  Weight: 65.8 kg

DRUGS (1)
  1. BONIVA [Suspect]
     Dosage: FORM: PILL, TAKEN FOR SEVERAL YEARS
     Route: 065

REACTIONS (3)
  - BREAST CANCER METASTATIC [None]
  - CARDIAC FAILURE [None]
  - RESPIRATORY ARREST [None]
